FAERS Safety Report 11704306 (Version 1)
Quarter: 2015Q4

REPORT INFORMATION
  Report Type: Spontaneous
  Country: US (occurrence: None)
  Receive Date: 20151105
  Receipt Date: 20151105
  Transmission Date: 20160304
  Serious: No
  Sender: FDA-Public Use
  Company Number: None

PATIENT

DRUGS (1)
  1. TATOO NUMB OINTMENT TOPICAL ANAESTHETIC  CREAM RED [Suspect]
     Active Substance: LIDOCAINE

REACTIONS (2)
  - Product label issue [None]
  - Failure of child resistant mechanism for pharmaceutical product [None]

NARRATIVE: CASE EVENT DATE: 20150806
